FAERS Safety Report 6838203-9 (Version None)
Quarter: 2010Q3

REPORT INFORMATION
  Report Type: 
  Country: None (occurrence: None)
  Receive Date: 20100709
  Receipt Date: 20100621
  Transmission Date: 20110219
  Serious: Yes (Hospitalization)
  Sender: FDA-Public Use
  Company Number: APP201000543

PATIENT
  Age: 39 Year
  Sex: Female

DRUGS (7)
  1. LIDOCAINE HCL INJ [Suspect]
     Indication: OBESITY
     Dosage: SUBCUTANEOUS
     Route: 058
  2. AMINOPHYLLIN [Suspect]
     Indication: OBESITY
  3. EPINEPHRINE [Suspect]
     Indication: OBESITY
  4. FLUOXETINE [Suspect]
     Indication: OBESITY
     Dosage: 10MG
  5. EPHEDRINE SUL CAP [Suspect]
     Indication: OBESITY
     Dosage: 10MG
  6. ANHYDROUS CAFFEINE [Suspect]
     Indication: OBESITY
     Dosage: 50MG
  7. GREEN TEA POWDER (CAMELLIA SINENSIS) [Suspect]
     Indication: OBESITY
     Dosage: 250MG

REACTIONS (5)
  - COLITIS ISCHAEMIC [None]
  - COLONOSCOPY ABNORMAL [None]
  - HAEMATOCHEZIA [None]
  - HAEMORRHAGE [None]
  - LARGE INTESTINAL ULCER [None]
